FAERS Safety Report 8179727-4 (Version None)
Quarter: 2012Q1

REPORT INFORMATION
  Report Type: 
  Country: None (occurrence: None)
  Receive Date: 20120302
  Receipt Date: 20120222
  Transmission Date: 20120608
  Serious: Yes (Hospitalization)
  Sender: FDA-Public Use
  Company Number: DE-JNJFOC-20120212026

PATIENT
  Age: 77 Year
  Sex: Male

DRUGS (8)
  1. DIPIPERON [Suspect]
     Indication: PRODUCT USED FOR UNKNOWN INDICATION
     Route: 048
     Dates: start: 20111224, end: 20120111
  2. LISINOPRIL [Concomitant]
     Route: 048
     Dates: start: 20060101
  3. HALOPERIDOL [Suspect]
     Indication: PRODUCT USED FOR UNKNOWN INDICATION
     Route: 048
     Dates: start: 20111218, end: 20111220
  4. HALOPERIDOL [Suspect]
     Route: 048
     Dates: start: 20111221, end: 20111222
  5. GALANTAMINE HYDROBROMIDE [Suspect]
     Indication: PRODUCT USED FOR UNKNOWN INDICATION
     Route: 048
     Dates: start: 20060101, end: 20120107
  6. ASPIRIN [Concomitant]
     Route: 048
     Dates: start: 20060101, end: 20120103
  7. BERODUAL SPRAY [Concomitant]
     Route: 055
     Dates: start: 20060101
  8. HALOPERIDOL [Suspect]
     Route: 048
     Dates: start: 20111223, end: 20120111

REACTIONS (6)
  - CHRONIC OBSTRUCTIVE PULMONARY DISEASE [None]
  - PYREXIA [None]
  - GENERAL PHYSICAL HEALTH DETERIORATION [None]
  - HOSPITALISATION [None]
  - DIARRHOEA [None]
  - CLOSTRIDIUM DIFFICILE COLITIS [None]
